FAERS Safety Report 5645776-0 (Version None)
Quarter: 2008Q1

REPORT INFORMATION
  Report Type: 
  Country: None (occurrence: None)
  Receive Date: 20080229
  Receipt Date: 20080222
  Transmission Date: 20080703
  Serious: Yes (Life-Threatening)
  Sender: FDA-Public Use
  Company Number: SE-ABBOTT-08P-150-0439503-00

PATIENT
  Age: 39 Year
  Sex: Female

DRUGS (2)
  1. REDUCTIL [Suspect]
     Indication: OBESITY
     Route: 048
     Dates: start: 20070401, end: 20080201
  2. ACETAMINOPHEN [Concomitant]
     Indication: DRUG USE FOR UNKNOWN INDICATION
     Route: 048

REACTIONS (7)
  - CHEST PAIN [None]
  - DYSPHAGIA [None]
  - DYSPNOEA [None]
  - HYPOAESTHESIA FACIAL [None]
  - SWELLING FACE [None]
  - SWOLLEN TONGUE [None]
  - TACHYCARDIA [None]
